FAERS Safety Report 8164025 (Version 5)
Quarter: 2016Q4

REPORT INFORMATION
  Report Type: Spontaneous
  Country: US (occurrence: US)
  Receive Date: 20110930
  Receipt Date: 20161207
  Transmission Date: 20170207
  Serious: Yes (Life-Threatening, Hospitalization, Other)
  Sender: FDA-Public Use
  Company Number: US-ASTRAZENECA-2010SE26308

PATIENT
  Age: 31508 Day
  Sex: Female
  Weight: 62.6 kg

DRUGS (7)
  1. ARIMIDEX [Suspect]
     Active Substance: ANASTROZOLE
     Indication: BREAST CANCER RECURRENT
     Route: 048
     Dates: start: 2008
  2. CRESTOR [Suspect]
     Active Substance: ROSUVASTATIN CALCIUM
     Dosage: 20.0MG UNKNOWN
     Route: 048
  3. OXYGEN. [Concomitant]
     Active Substance: OXYGEN
  4. ANTIBIOTICS [Concomitant]
     Active Substance: UNSPECIFIED INGREDIENT
  5. OTHER MEDICATIONS [Interacting]
     Active Substance: UNSPECIFIED INGREDIENT
     Route: 065
  6. NEXIUM [Interacting]
     Active Substance: ESOMEPRAZOLE MAGNESIUM
     Route: 048
  7. UNSPECIFIED [Concomitant]
     Active Substance: UNSPECIFIED INGREDIENT

REACTIONS (13)
  - Myocardial infarction [Unknown]
  - Weight increased [Unknown]
  - Barrett^s oesophagus [Unknown]
  - Bronchitis [Unknown]
  - Pneumonia [Unknown]
  - Neoplasm malignant [Unknown]
  - Breast cancer [Unknown]
  - Urinary tract infection [Unknown]
  - Malaise [Unknown]
  - Body height decreased [Unknown]
  - Weight decreased [Unknown]
  - Drug interaction [Unknown]
  - Asthenia [Unknown]

NARRATIVE: CASE EVENT DATE: 20160407
